FAERS Safety Report 8958401 (Version 1)
Quarter: 2012Q4

REPORT INFORMATION
  Report Type: 
  Country: IT (occurrence: IT)
  Receive Date: 20121210
  Receipt Date: 20121210
  Transmission Date: 20130627
  Serious: Yes (Other)
  Sender: FDA-Public Use
  Company Number: IT-GLAXOSMITHKLINE-B0850371A

PATIENT
  Age: 63 Year
  Sex: Male

DRUGS (4)
  1. IMIGRAN [Suspect]
     Indication: CLUSTER HEADACHE
     Dosage: .6MG As required
     Route: 065
     Dates: start: 20121001, end: 20121106
  2. DELTACORTENE [Concomitant]
  3. OMNIC [Concomitant]
     Dosage: .4MG Per day
     Route: 048
  4. ISOPTIN [Concomitant]
     Dosage: 80MG Per day
     Route: 048

REACTIONS (1)
  - Drug abuse [Unknown]
